FAERS Safety Report 13601516 (Version 1)
Quarter: 2017Q2

REPORT INFORMATION
  Report Type: Spontaneous
  Country: US (occurrence: US)
  Receive Date: 20170525
  Receipt Date: 20170525
  Transmission Date: 20170830
  Serious: Yes (Life-Threatening, Hospitalization, Other)
  Sender: FDA-Public Use
  Company Number: None

PATIENT
  Age: 82 Year
  Sex: Male
  Weight: 65.83 kg

DRUGS (1)
  1. LEXISCAN [Suspect]
     Active Substance: REGADENOSON

REACTIONS (7)
  - Renal failure [None]
  - Cardiac disorder [None]
  - Dialysis [None]
  - Atrial fibrillation [None]
  - Angina pectoris [None]
  - Chest pain [None]
  - Anal incontinence [None]

NARRATIVE: CASE EVENT DATE: 20170424
